FAERS Safety Report 8493180-2 (Version None)
Quarter: 2012Q3

REPORT INFORMATION
  Report Type: 
  Country: None (occurrence: None)
  Receive Date: 20120706
  Receipt Date: 20120627
  Transmission Date: 20120928
  Serious: Yes (Hospitalization)
  Sender: FDA-Public Use
  Company Number: JP-VERTEX PHARMACEUTICALS INC.-AE-2012-009362

PATIENT
  Age: 62 Year
  Sex: Female

DRUGS (20)
  1. NADIC [Concomitant]
     Route: 048
  2. LAC-B [Concomitant]
     Route: 048
     Dates: start: 20120316
  3. URINORM [Concomitant]
     Route: 048
     Dates: start: 20120316
  4. URALYT [Concomitant]
     Route: 048
     Dates: start: 20120316
  5. AZUNOL [Concomitant]
     Route: 061
     Dates: start: 20120319
  6. RIBAVIRIN [Concomitant]
     Indication: HEPATITIS C
     Route: 048
     Dates: start: 20120313, end: 20120320
  7. PEG-INTRON [Concomitant]
     Indication: HEPATITIS C
     Route: 058
     Dates: start: 20120313, end: 20120531
  8. GASMOTIN [Concomitant]
     Route: 048
  9. SELBEX [Concomitant]
     Route: 048
  10. LOXONIN [Concomitant]
     Route: 048
     Dates: start: 20120313
  11. TELAVIC (TELAPREVIR) [Suspect]
     Route: 048
     Dates: start: 20120316, end: 20120531
  12. RIBAVIRIN [Concomitant]
     Route: 048
     Dates: start: 20120321, end: 20120509
  13. ALDACTONE [Concomitant]
     Route: 048
  14. FAMOTIDINE [Concomitant]
     Route: 048
  15. PRIMPERAN TAB [Concomitant]
     Route: 048
     Dates: start: 20120317
  16. TELAVIC (TELAPREVIR) [Suspect]
     Indication: HEPATITIS C
     Route: 048
     Dates: start: 20120313, end: 20120315
  17. JUVELA N [Concomitant]
     Route: 048
  18. CANDESARTAN CILEXETIL [Concomitant]
     Route: 048
  19. LOPERAMIDE HYDROCHLORIDE [Concomitant]
     Route: 048
     Dates: start: 20120319
  20. METALCAPTASE [Concomitant]
     Route: 048

REACTIONS (2)
  - HAEMOGLOBIN DECREASED [None]
  - WHITE BLOOD CELL COUNT DECREASED [None]
